FAERS Safety Report 17571300 (Version 1)
Quarter: 2020Q1

REPORT INFORMATION
  Report Type: Spontaneous
  Country: AT (occurrence: AT)
  Receive Date: 20200323
  Receipt Date: 20200323
  Transmission Date: 20200409
  Serious: Yes (Other)
  Sender: FDA-Public Use
  Company Number: AT-MACLEODS PHARMACEUTICALS US LTD-MAC2020025840

PATIENT

DRUGS (5)
  1. LEVODOPA [Suspect]
     Active Substance: LEVODOPA
     Indication: PRODUCT USED FOR UNKNOWN INDICATION
     Dosage: UNK
     Route: 065
  2. PRAMIPEXOLE. [Suspect]
     Active Substance: PRAMIPEXOLE
     Indication: PRODUCT USED FOR UNKNOWN INDICATION
     Dosage: UNK
     Route: 065
  3. PRAMIPEXOLE. [Suspect]
     Active Substance: PRAMIPEXOLE
     Dosage: UNK, ESCALATING DOSAGE
     Route: 065
  4. LEVODOPA [Suspect]
     Active Substance: LEVODOPA
     Dosage: 1200 MILLIGRAM
     Route: 065
     Dates: start: 201604
  5. LEVODOPA [Suspect]
     Active Substance: LEVODOPA
     Dosage: UNK, DOSE ESCALATION
     Route: 065

REACTIONS (2)
  - Parkinsonism [Not Recovered/Not Resolved]
  - Arachnoid cyst [Not Recovered/Not Resolved]
